FAERS Safety Report 4976367-2 (Version None)
Quarter: 2006Q2

REPORT INFORMATION
  Report Type: 
  Country: None (occurrence: None)
  Receive Date: 20060412
  Receipt Date: 20060327
  Transmission Date: 20061013
  Serious: No
  Sender: FDA-Public Use
  Company Number: US017240

PATIENT
  Age: 23 Month
  Sex: Male
  Weight: 9.1 kg

DRUGS (1)
  1. ACTIQ [Suspect]
     Dosage: 400 UG ONCE BUCCAL
     Route: 002
     Dates: start: 20040524, end: 20040524

REACTIONS (2)
  - ACCIDENTAL DRUG INTAKE BY CHILD [None]
  - NO ADVERSE DRUG EFFECT [None]
